APPROVED DRUG PRODUCT: ACYCLOVIR
Active Ingredient: ACYCLOVIR
Strength: 5%
Dosage Form/Route: OINTMENT;TOPICAL
Application: A212202 | Product #001
Applicant: PRINSTON PHARMACEUTICAL INC
Approved: Nov 15, 2021 | RLD: No | RS: No | Type: DISCN